FAERS Safety Report 23904414 (Version 1)
Quarter: 2024Q2

REPORT INFORMATION
  Report Type: Spontaneous
  Country: TN (occurrence: None)
  Receive Date: 20240527
  Receipt Date: 20240527
  Transmission Date: 20240716
  Serious: Yes (Other)
  Sender: FDA-Public Use
  Company Number: TN-Unichem Pharmaceuticals (USA) Inc-UCM202405-000569

PATIENT
  Age: 76 Year
  Sex: Male

DRUGS (1)
  1. DIVALPROEX SODIUM [Suspect]
     Active Substance: DIVALPROEX SODIUM
     Indication: Generalised tonic-clonic seizure
     Dates: start: 202111

REACTIONS (1)
  - Central sleep apnoea syndrome [Recovered/Resolved]
